FAERS Safety Report 20929541 (Version 2)
Quarter: 2022Q3

REPORT INFORMATION
  Report Type: Spontaneous
  Country: US (occurrence: US)
  Receive Date: 20220608
  Receipt Date: 20220812
  Transmission Date: 20221026
  Serious: No
  Sender: FDA-Public Use
  Company Number: US-PCCINC-2022-PEL-000265

PATIENT

DRUGS (1)
  1. GABLOFEN [Suspect]
     Active Substance: BACLOFEN
     Indication: Product used for unknown indication
     Dosage: 714.4 MICROGRAM/DAY
     Route: 037

REACTIONS (1)
  - Therapeutic product effect incomplete [Recovered/Resolved]
